FAERS Safety Report 20306042 (Version 4)
Quarter: 2022Q1

REPORT INFORMATION
  Report Type: Spontaneous
  Country: ZA (occurrence: ZA)
  Receive Date: 20220106
  Receipt Date: 20220203
  Transmission Date: 20220423
  Serious: Yes (Other)
  Sender: FDA-Public Use
  Company Number: ZA-ALLERGAN-2143773US

PATIENT
  Sex: Female

DRUGS (6)
  1. BOTOX [Suspect]
     Active Substance: ONABOTULINUMTOXINA
     Indication: Skin wrinkling
     Dosage: 17 UNITS, SINGLE
     Dates: start: 20211220, end: 20211220
  2. BOTOX [Suspect]
     Active Substance: ONABOTULINUMTOXINA
     Indication: Skin wrinkling
     Dosage: 6 UNITS, SINGLE
     Dates: start: 20211220, end: 20211220
  3. GINETTE [Concomitant]
     Indication: Oral contraception
  4. HYDROCORTISONE [Concomitant]
     Active Substance: HYDROCORTISONE
  5. LAMOTRIGINE [Concomitant]
     Active Substance: LAMOTRIGINE
     Indication: Affective disorder
  6. QUETIAPINE [Concomitant]
     Active Substance: QUETIAPINE
     Indication: Affective disorder

REACTIONS (12)
  - Contusion [Not Recovered/Not Resolved]
  - Injection site pain [Not Recovered/Not Resolved]
  - Rash [Not Recovered/Not Resolved]
  - Off label use [Unknown]
  - Pain [Not Recovered/Not Resolved]
  - Injection site induration [Unknown]
  - Injection site mass [Unknown]
  - Headache [Not Recovered/Not Resolved]
  - Nausea [Unknown]
  - Vomiting [Unknown]
  - Drug ineffective [Unknown]
  - Drug ineffective for unapproved indication [Unknown]

NARRATIVE: CASE EVENT DATE: 20211220
